FAERS Safety Report 24440496 (Version 1)
Quarter: 2024Q4

REPORT INFORMATION
  Report Type: Spontaneous
  Country: US (occurrence: US)
  Receive Date: 20241016
  Receipt Date: 20241016
  Transmission Date: 20250114
  Serious: Yes (Other)
  Sender: ELI LILLY AND COMPANY
  Company Number: US-ELI_LILLY_AND_COMPANY-US202410004485

PATIENT
  Age: 64 Year
  Sex: Male

DRUGS (2)
  1. ERBITUX [Suspect]
     Active Substance: CETUXIMAB
     Indication: Product used for unknown indication
     Dosage: UNK UNK, UNKNOWN
     Route: 065
  2. BRAFTOVI [Concomitant]
     Active Substance: ENCORAFENIB
     Indication: Neoplasm malignant

REACTIONS (3)
  - Anaphylactic reaction [Unknown]
  - Hyperhidrosis [Unknown]
  - Throat irritation [Unknown]
